FAERS Safety Report 8543657 (Version 4)
Quarter: 2012Q4

REPORT INFORMATION
  Report Type: 
  Country: US (occurrence: US)
  Receive Date: 20120503
  Receipt Date: 20120907
  Transmission Date: 20130627
  Serious: Yes (Hospitalization)
  Sender: FDA-Public Use
  Company Number: US-BAYER-2012-041773

PATIENT
  Age: 33 Year
  Sex: Female
  Weight: 62.99 kg

DRUGS (15)
  1. YAZ [Suspect]
     Indication: CONTRACEPTION
     Dosage: UNK
     Dates: start: 201002, end: 201006
  2. YAZ [Suspect]
     Indication: MENSTRUAL CYCLE MANAGEMENT
  3. MULTIVITAMIN [Concomitant]
     Dosage: UNK
     Dates: start: 1995
  4. CLEOCIN [Concomitant]
     Dosage: UNK
     Dates: start: 2010, end: 2011
  5. VITAMIN C [Concomitant]
  6. ALBUTEROL [Concomitant]
  7. NSAID^S [Concomitant]
     Dosage: UNK UNK, PRN
  8. POTASSIUM [Concomitant]
     Dosage: UNK
     Dates: start: 2010, end: 2011
  9. THERAFLU FLU, COLD + COUGH [Concomitant]
     Dosage: UNK
     Dates: start: 20101226
  10. MOTRIN [Concomitant]
     Dosage: UNK
     Dates: start: 20101226
  11. XANAX [Concomitant]
  12. EFFEXOR [Concomitant]
     Dosage: 37.5 mg, UNK
     Route: 048
     Dates: start: 20110111
  13. NYSTATIN [Concomitant]
     Dosage: Four times per day
  14. ZOFRAN [Concomitant]
  15. MORPHINE [Concomitant]

REACTIONS (12)
  - Gallbladder disorder [None]
  - Biliary dyskinesia [None]
  - Impaired gastric emptying [None]
  - Pain [None]
  - Injury [None]
  - Anxiety [None]
  - Emotional distress [None]
  - Psychological trauma [None]
  - Abdominal discomfort [None]
  - Vomiting [None]
  - Abdominal distension [None]
  - Weight decreased [None]
